FAERS Safety Report 16665786 (Version 1)
Quarter: 2019Q3

REPORT INFORMATION
  Report Type: Spontaneous
  Country: CA (occurrence: CA)
  Receive Date: 20190804
  Receipt Date: 20190804
  Transmission Date: 20191004
  Serious: Yes (Hospitalization, Other)
  Sender: FDA-Public Use
  Company Number: CA-BAYER-2019-139603

PATIENT
  Sex: Female

DRUGS (8)
  1. PREDNISONE. [Suspect]
     Active Substance: PREDNISONE
     Indication: RHEUMATOID ARTHRITIS
     Dosage: 50.0 MG
  2. SIMPONI [Suspect]
     Active Substance: GOLIMUMAB
     Indication: RHEUMATOID ARTHRITIS
     Dosage: UNK
     Route: 058
  3. CIMZIA [Suspect]
     Active Substance: CERTOLIZUMAB PEGOL
     Indication: RHEUMATOID ARTHRITIS
     Dosage: UNK
     Route: 058
  4. DILTIAZEM. [Suspect]
     Active Substance: DILTIAZEM
     Indication: PRODUCT USED FOR UNKNOWN INDICATION
     Dosage: 120.0 MG
     Route: 065
  5. ALEVE [Suspect]
     Active Substance: NAPROXEN SODIUM
     Indication: RHEUMATOID ARTHRITIS
     Dosage: UNK
     Route: 065
  6. CORTISONE ACETATE. [Suspect]
     Active Substance: CORTISONE ACETATE
     Indication: RHEUMATOID ARTHRITIS
     Dosage: 25.0 MG
     Route: 065
  7. ORENCIA [Suspect]
     Active Substance: ABATACEPT
     Indication: RHEUMATOID ARTHRITIS
     Dosage: UNK
     Route: 065
  8. RITUXAN [Suspect]
     Active Substance: RITUXIMAB
     Indication: RHEUMATOID ARTHRITIS
     Dosage: UNK
     Route: 042

REACTIONS (10)
  - Infection [Recovering/Resolving]
  - Pulmonary congestion [Recovering/Resolving]
  - Atrial fibrillation [Recovering/Resolving]
  - Nerve injury [Recovering/Resolving]
  - Hypersensitivity [Recovering/Resolving]
  - Nephrolithiasis [Recovering/Resolving]
  - Drug ineffective [Recovering/Resolving]
  - Hypoaesthesia [Recovering/Resolving]
  - Pain in extremity [Recovering/Resolving]
  - Paraesthesia [Recovering/Resolving]
